FAERS Safety Report 6823826-3 (Version None)
Quarter: 2010Q3

REPORT INFORMATION
  Report Type: 
  Country: None (occurrence: None)
  Receive Date: 20100708
  Receipt Date: 20060912
  Transmission Date: 20110219
  Serious: No
  Sender: FDA-Public Use
  Company Number: US-PFIZER INC-2006112249

PATIENT
  Sex: Female
  Weight: 74.84 kg

DRUGS (3)
  1. CHANTIX [Suspect]
     Indication: SMOKING CESSATION THERAPY
     Dates: start: 20060901
  2. ATIVAN [Concomitant]
  3. ALLEGRA D 24 HOUR [Concomitant]

REACTIONS (3)
  - FEELING ABNORMAL [None]
  - MALAISE [None]
  - TOBACCO USER [None]
